FAERS Safety Report 25547598 (Version 5)
Quarter: 2025Q3

REPORT INFORMATION
  Report Type: Report from Study
  Country: JP (occurrence: JP)
  Receive Date: 20250714
  Receipt Date: 20250804
  Transmission Date: 20251020
  Serious: Yes (Hospitalization)
  Sender: ABBVIE
  Company Number: JP-ABBVIE-6364695

PATIENT
  Age: 60 Year
  Sex: Male
  Weight: 63 kg

DRUGS (10)
  1. UPADACITINIB [Suspect]
     Active Substance: UPADACITINIB
     Indication: Crohn^s disease
     Route: 048
     Dates: start: 20250416
  2. RISANKIZUMAB [Concomitant]
     Active Substance: RISANKIZUMAB
     Indication: Crohn^s disease
     Route: 058
     Dates: start: 20230509
  3. ZOLPIDEM TARTRATE [Concomitant]
     Active Substance: ZOLPIDEM TARTRATE
     Indication: Insomnia
     Route: 048
     Dates: start: 20190409
  4. SUCRALFATE [Concomitant]
     Active Substance: SUCRALFATE
     Indication: Crohn^s disease
     Route: 048
     Dates: start: 20210908
  5. ETIZOLAM [Concomitant]
     Active Substance: ETIZOLAM
     Indication: Crohn^s disease
     Route: 048
     Dates: start: 20201216
  6. Ciprofloxacin Hydrochloride Hydrate [Concomitant]
     Indication: Crohn^s disease
     Route: 048
     Dates: start: 20231107
  7. FAMOTIDINE [Concomitant]
     Active Substance: FAMOTIDINE
     Indication: Crohn^s disease
     Route: 048
     Dates: start: 20230815
  8. TSUMURA [Concomitant]
     Indication: Crohn^s disease
     Dosage: SHAKUYAKUKANZOTO EXTRACT GRANULES FOR ETHICAL USE
     Route: 048
     Dates: start: 20240902
  9. MAGNESIUM OXIDE [Concomitant]
     Active Substance: MAGNESIUM OXIDE
     Indication: Crohn^s disease
     Route: 048
     Dates: start: 20240508
  10. BETAMETHASONE SODIUM PHOSPHATE [Concomitant]
     Active Substance: BETAMETHASONE SODIUM PHOSPHATE
     Indication: Crohn^s disease
     Route: 054
     Dates: start: 20250318

REACTIONS (1)
  - Haematochezia [Recovered/Resolved]

NARRATIVE: CASE EVENT DATE: 20250701
